FAERS Safety Report 10650387 (Version 1)
Quarter: 2014Q4

REPORT INFORMATION
  Report Type: Spontaneous
  Country: JP (occurrence: JP)
  Receive Date: 20141213
  Receipt Date: 20141213
  Transmission Date: 20150529
  Serious: Yes (Other)
  Sender: FDA-Public Use
  Company Number: JP-MYLANLABS-2014M1012549

PATIENT

DRUGS (7)
  1. FLUOROURACIL. [Suspect]
     Active Substance: FLUOROURACIL
     Route: 013
  2. FLUOROURACIL. [Suspect]
     Active Substance: FLUOROURACIL
     Indication: METASTASES TO ADRENALS
  3. CISPLATIN INJECTION 10MG ^MYLAN^ [Suspect]
     Active Substance: CISPLATIN
     Indication: HEPATOCELLULAR CARCINOMA
     Dosage: UNK
     Route: 013
  4. FLUOROURACIL. [Suspect]
     Active Substance: FLUOROURACIL
     Indication: HEPATOCELLULAR CARCINOMA
  5. CISPLATIN INJECTION 10MG ^MYLAN^ [Suspect]
     Active Substance: CISPLATIN
     Indication: METASTASES TO ADRENALS
     Dosage: UNK
     Route: 013
  6. CISPLATIN INJECTION 10MG ^MYLAN^ [Suspect]
     Active Substance: CISPLATIN
     Indication: HEPATOCELLULAR CARCINOMA
     Route: 013
  7. CISPLATIN INJECTION 10MG ^MYLAN^ [Suspect]
     Active Substance: CISPLATIN
     Indication: METASTASES TO ADRENALS
     Route: 013

REACTIONS (1)
  - Blue toe syndrome [Unknown]
